FAERS Safety Report 8906057 (Version 2)
Quarter: 2013Q1

REPORT INFORMATION
  Report Type: Spontaneous
  Country: US (occurrence: US)
  Receive Date: 20121109
  Receipt Date: 20130228
  Transmission Date: 20140127
  Serious: Yes (Other)
  Sender: FDA-Public Use
  Company Number: US-US-EMD SERONO, INC.-7172243

PATIENT
  Age: 39 None
  Sex: Female
  Weight: 99 kg

DRUGS (6)
  1. REBIF [Suspect]
     Indication: MULTIPLE SCLEROSIS
     Route: 058
     Dates: start: 20090930, end: 20121101
  2. LISINOPRIL [Concomitant]
     Indication: HYPERTENSION
     Dates: start: 20090410
  3. LAMICTAL XR [Concomitant]
     Indication: VERTIGO
     Dates: start: 20090930, end: 20111206
  4. LEVOTHYROXIN [Concomitant]
     Indication: HYPOTHYROIDISM
     Dates: start: 20081206
  5. OMEPRAZOLE [Concomitant]
     Indication: GASTROOESOPHAGEAL REFLUX DISEASE
     Dates: start: 20120926
  6. VITAMIN D [Concomitant]
     Indication: PRODUCT USED FOR UNKNOWN INDICATION

REACTIONS (4)
  - Vaginal haemorrhage [Recovered/Resolved]
  - Central nervous system lesion [Unknown]
  - White blood cell count decreased [Recovered/Resolved]
  - Depression [Unknown]
